FAERS Safety Report 6418714-0 (Version None)
Quarter: 2009Q4

REPORT INFORMATION
  Report Type: 
  Country: None (occurrence: None)
  Receive Date: 20091026
  Receipt Date: 20091008
  Transmission Date: 20100525
  Serious: Yes (Other)
  Sender: FDA-Public Use
  Company Number: 2009S1007849

PATIENT
  Sex: Male

DRUGS (1)
  1. PHOSPHOSODA FLAVOR NOT SPECIFIED [Suspect]
     Indication: COLONOSCOPY
     Dosage: 90 ML;TOTAL;PO
     Route: 048
     Dates: start: 20031001, end: 20031001

REACTIONS (4)
  - DIALYSIS [None]
  - DRUG TOXICITY [None]
  - RENAL FAILURE CHRONIC [None]
  - RENAL TRANSPLANT [None]
